FAERS Safety Report 17438655 (Version 1)
Quarter: 2020Q1

REPORT INFORMATION
  Report Type: Spontaneous
  Country: DE (occurrence: DE)
  Receive Date: 20200220
  Receipt Date: 20200220
  Transmission Date: 20200409
  Serious: Yes (Death, Hospitalization)
  Sender: FDA-Public Use
  Company Number: DE-TEVA-2020-DE-1188790

PATIENT
  Age: 87 Year
  Sex: Female

DRUGS (6)
  1. IBUPROFEN. [Suspect]
     Active Substance: IBUPROFEN
     Dosage: 200 MG, 1X
  2. BISOPROLOL [Suspect]
     Active Substance: BISOPROLOL
     Dosage: 2.5 MILLIGRAM DAILY; 2.5 MG, 0.5-0-0-0
  3. ACETYLSALICYLS?URE [Concomitant]
     Active Substance: ASPIRIN
     Dosage: 100 MILLIGRAM DAILY; 100 MG, 1-0-0-0
  4. ETORICOXIB (ETORICOXIB) [Suspect]
     Active Substance: ETORICOXIB
     Dosage: 60 MG, IF NECESSARY
     Route: 065
  5. CARBIMAZOL [Concomitant]
     Active Substance: CARBIMAZOLE
     Dosage: 10 MILLIGRAM DAILY; 10 MG, 0.5-0-0-0
  6. TORASEMIDE [Suspect]
     Active Substance: TORSEMIDE
     Dosage: 5 MILLIGRAM DAILY; 5 MG, 1-0-0-0

REACTIONS (5)
  - Abdominal distension [Unknown]
  - Syncope [Unknown]
  - Cardiac failure [Unknown]
  - Vomiting [Unknown]
  - Oedema peripheral [Unknown]
